FAERS Safety Report 17523515 (Version 1)
Quarter: 2020Q1

REPORT INFORMATION
  Report Type: Spontaneous
  Country: IT (occurrence: IT)
  Receive Date: 20200311
  Receipt Date: 20200311
  Transmission Date: 20200409
  Serious: Yes (Hospitalization, Other)
  Sender: FDA-Public Use
  Company Number: IT-TEVA-100#03#2008-04082

PATIENT
  Age: 53 Year
  Sex: Male

DRUGS (6)
  1. VENLAFAXINE [Suspect]
     Active Substance: VENLAFAXINE HYDROCHLORIDE
     Indication: DEPRESSION
     Dosage: 75 MILLIGRAM DAILY;
     Route: 048
  2. VENLAFAXINE [Suspect]
     Active Substance: VENLAFAXINE HYDROCHLORIDE
     Dosage: 2100 MILLIGRAM DAILY; 28 TABLETS (I.E. 2100 MG) DAILY
     Route: 048
  3. AMLODIPINE [Concomitant]
     Active Substance: AMLODIPINE BESYLATE
     Indication: ESSENTIAL HYPERTENSION
  4. VENLAFAXINE [Suspect]
     Active Substance: VENLAFAXINE HYDROCHLORIDE
     Dosage: 3750 MILLIGRAM DAILY; 50 TABLETS (I.E. 3750 MG) DAILY
     Route: 048
  5. NEBIVOLOL. [Concomitant]
     Active Substance: NEBIVOLOL
     Indication: ESSENTIAL HYPERTENSION
  6. VENLAFAXINE [Suspect]
     Active Substance: VENLAFAXINE HYDROCHLORIDE
     Indication: DRUG ABUSE
     Dosage: 750 MILLIGRAM DAILY; 10 TABLETS (I.E. 750 MG) DAILY
     Route: 048

REACTIONS (12)
  - Drug tolerance [Unknown]
  - Drug abuse [Unknown]
  - Asthenia [Unknown]
  - Tremor [Unknown]
  - Weight decreased [Unknown]
  - Psychomotor hyperactivity [Unknown]
  - Overdose [Unknown]
  - Euphoric mood [Unknown]
  - Fall [Unknown]
  - Dizziness [Unknown]
  - Withdrawal syndrome [Unknown]
  - Drug dependence [Not Recovered/Not Resolved]
